FAERS Safety Report 8791265 (Version 1)
Quarter: 2012Q4

REPORT INFORMATION
  Report Type: Spontaneous
  Country: IT (occurrence: None)
  Receive Date: 20120911
  Receipt Date: 20120911
  Transmission Date: 20130627
  Serious: Yes (Hospitalization)
  Sender: FDA-Public Use
  Company Number: GER/ITL/12/0025717

PATIENT
  Age: 19 Year
  Sex: Male

DRUGS (2)
  1. RISPERIDONE [Suspect]
     Indication: PSYCHOTIC DISORDER
     Route: 048
     Dates: start: 20120525, end: 20120530
  2. ANAFRANIL [Concomitant]

REACTIONS (3)
  - Abdominal pain [None]
  - Constipation [None]
  - Faecaloma [None]
